FAERS Safety Report 9440484 (Version 1)
Quarter: 2013Q3

REPORT INFORMATION
  Report Type: Spontaneous
  Country: US (occurrence: US)
  Receive Date: 20130805
  Receipt Date: 20130805
  Transmission Date: 20140515
  Serious: Yes (Hospitalization)
  Sender: FDA-Public Use
  Company Number: US-OPTIMER-20130313

PATIENT
  Sex: Male

DRUGS (7)
  1. DIFICID [Suspect]
     Indication: CLOSTRIDIAL INFECTION
     Dosage: 200 MG, BID
     Route: 048
  2. XANAX [Concomitant]
     Dosage: UNK
  3. QUESTRAN [Concomitant]
     Dosage: UNK
  4. ASPIRIN [Concomitant]
     Dosage: UNK
  5. COD LIVER OIL [Concomitant]
     Dosage: UNK
  6. JALYN [Concomitant]
     Dosage: UNK
  7. VITAMIN D [Concomitant]
     Dosage: UNK

REACTIONS (1)
  - Urinary tract infection [Not Recovered/Not Resolved]
